FAERS Safety Report 20867592 (Version 1)
Quarter: 2022Q2

REPORT INFORMATION
  Report Type: Spontaneous
  Country: US (occurrence: US)
  Receive Date: 20220524
  Receipt Date: 20220524
  Transmission Date: 20220721
  Serious: No
  Sender: FDA-Public Use
  Company Number: US-PRINSTON PHARMACEUTICAL INC.-2022PRN00108

PATIENT
  Age: 77 Year
  Sex: Female

DRUGS (2)
  1. DULOXETINE [Suspect]
     Active Substance: DULOXETINE
     Indication: Depression
     Dosage: 30 MG, 3X/DAY (MORNING, NOON, EVENING)
     Dates: end: 2022
  2. DULOXETINE [Suspect]
     Active Substance: DULOXETINE
     Dosage: 90 MG, 1X/DAY
     Dates: start: 2022

REACTIONS (2)
  - Drug ineffective [Not Recovered/Not Resolved]
  - Off label use [Recovered/Resolved]
